FAERS Safety Report 15183538 (Version 1)
Quarter: 2018Q3

REPORT INFORMATION
  Report Type: Spontaneous
  Country: US (occurrence: US)
  Receive Date: 20180723
  Receipt Date: 20180723
  Transmission Date: 20181010
  Serious: Yes (Other)
  Sender: FDA-Public Use
  Company Number: US-AMNEAL PHARMACEUTICALS-2018AMN00370

PATIENT
  Sex: Female

DRUGS (4)
  1. ABORTION PILL [Concomitant]
     Dosage: UNK
     Dates: start: 20180613, end: 20180613
  2. MELODETTA [Concomitant]
  3. ORTHO TRI CYCLEN [Concomitant]
     Active Substance: ETHINYL ESTRADIOL\NORGESTIMATE
     Dosage: UNK
     Dates: start: 20180416
  4. ISOTRETINOIN. [Suspect]
     Active Substance: ISOTRETINOIN
     Dosage: 20 MG, 2X/DAY
     Dates: start: 20180516, end: 20180613

REACTIONS (1)
  - Exposure during pregnancy [Recovered/Resolved]
